FAERS Safety Report 8835224 (Version 1)
Quarter: 2012Q4

REPORT INFORMATION
  Report Type: Report from Study
  Country: CN (occurrence: CN)
  Receive Date: 20121011
  Receipt Date: 20121011
  Transmission Date: 20130627
  Serious: Yes (Other)
  Sender: FDA-Public Use
  Company Number: CN-ROCHE-1143747

PATIENT
  Age: 58 Year
  Sex: Female

DRUGS (1)
  1. PEGASYS [Suspect]
     Indication: HEPATITIS C
     Route: 058
     Dates: start: 20120912, end: 20120919

REACTIONS (3)
  - Jaundice [Unknown]
  - Blood bilirubin increased [Unknown]
  - White blood cell count decreased [Unknown]
